FAERS Safety Report 15659421 (Version 1)
Quarter: 2018Q4

REPORT INFORMATION
  Report Type: Spontaneous
  Country: US (occurrence: US)
  Receive Date: 20181127
  Receipt Date: 20181127
  Transmission Date: 20190205
  Serious: No
  Sender: FDA-Public Use
  Company Number: US-INGENUS PHARMACEUTICALS NJ, LLC-ING201809-000970

PATIENT
  Sex: Male
  Weight: 77.11 kg

DRUGS (3)
  1. ATORVASTATIN [Concomitant]
     Active Substance: ATORVASTATIN
  2. ASPIRIN. [Concomitant]
     Active Substance: ASPIRIN
  3. CARISOPRODOL. [Suspect]
     Active Substance: CARISOPRODOL
     Dosage: 4 PILLS A DAY (TWO TABLETS TWO TIMES A DAY)

REACTIONS (1)
  - Drug ineffective [Unknown]
